FAERS Safety Report 25498248 (Version 2)
Quarter: 2025Q3

REPORT INFORMATION
  Report Type: Report from Study
  Country: CA (occurrence: CA)
  Receive Date: 20250701
  Receipt Date: 20250709
  Transmission Date: 20251021
  Serious: Yes (Hospitalization)
  Sender: TAKEDA
  Company Number: CA-TAKEDA-2025TUS058336

PATIENT
  Sex: Male

DRUGS (2)
  1. VEDOLIZUMAB [Suspect]
     Active Substance: VEDOLIZUMAB
     Indication: Crohn^s disease
  2. ENTOCORT [Concomitant]
     Active Substance: BUDESONIDE

REACTIONS (1)
  - Pleural effusion [Unknown]
